FAERS Safety Report 6582613-4 (Version None)
Quarter: 2010Q1

REPORT INFORMATION
  Report Type: 
  Country: None (occurrence: None)
  Receive Date: 20100216
  Receipt Date: 20100209
  Transmission Date: 20100710
  Serious: Yes (Death)
  Sender: FDA-Public Use
  Company Number: FR-WYE-G05543210

PATIENT
  Age: 81 Year
  Sex: Male

DRUGS (6)
  1. EFFEXOR [Suspect]
     Route: 048
  2. ATARAX [Suspect]
     Route: 048
  3. RISPERDAL [Suspect]
     Route: 048
  4. PARKINANE LP [Suspect]
     Route: 048
  5. COVERSYL [Suspect]
     Route: 048
  6. KARDEGIC [Suspect]
     Route: 048

REACTIONS (1)
  - DEATH [None]
